FAERS Safety Report 13829978 (Version 2)
Quarter: 2017Q3

REPORT INFORMATION
  Report Type: Spontaneous
  Country: DE (occurrence: DE)
  Receive Date: 20170803
  Receipt Date: 20170919
  Transmission Date: 20171127
  Serious: Yes (Disabling)
  Sender: FDA-Public Use
  Company Number: GXKR2017DE003941

PATIENT
  Age: 51 Year
  Sex: Male
  Weight: 78 kg

DRUGS (1)
  1. AMOXI 1A PHARMA [Suspect]
     Active Substance: AMOXICILLIN
     Indication: ANTIBIOTIC PROPHYLAXIS
     Dosage: 1000 MG, TID
     Route: 048
     Dates: start: 20170626, end: 20170703

REACTIONS (2)
  - Rash pruritic [Recovering/Resolving]
  - Palatal swelling [Unknown]

NARRATIVE: CASE EVENT DATE: 20170628
